FAERS Safety Report 5502318-8 (Version None)
Quarter: 2007Q4

REPORT INFORMATION
  Report Type: 
  Country: None (occurrence: None)
  Receive Date: 20071030
  Receipt Date: 20071022
  Transmission Date: 20080405
  Serious: Yes (Death)
  Sender: FDA-Public Use
  Company Number: LB-SANOFI-SYNTHELABO-A01200711871

PATIENT
  Sex: Male

DRUGS (6)
  1. ASPIRIN [Concomitant]
     Indication: CORONARY ANGIOPLASTY
     Dosage: UNK
     Route: 065
     Dates: start: 20070715
  2. ASPIRIN [Concomitant]
     Indication: STENT PLACEMENT
     Dosage: UNK
     Route: 065
     Dates: start: 20070715
  3. ASPIRIN [Concomitant]
     Indication: ACUTE CORONARY SYNDROME
     Dosage: UNK
     Route: 065
     Dates: start: 20070715
  4. PLAVIX [Suspect]
     Indication: CORONARY ANGIOPLASTY
     Dosage: UNK
     Route: 048
     Dates: start: 20070715, end: 20070721
  5. PLAVIX [Suspect]
     Indication: STENT PLACEMENT
     Dosage: UNK
     Route: 048
     Dates: start: 20070715, end: 20070721
  6. PLAVIX [Suspect]
     Indication: ACUTE CORONARY SYNDROME
     Dosage: UNK
     Route: 048
     Dates: start: 20070715, end: 20070721

REACTIONS (1)
  - SUDDEN DEATH [None]
